FAERS Safety Report 7716381-7 (Version None)
Quarter: 2011Q3

REPORT INFORMATION
  Report Type: 
  Country: None (occurrence: None)
  Receive Date: 20110829
  Receipt Date: 20110826
  Transmission Date: 20111222
  Serious: Yes (Other)
  Sender: FDA-Public Use
  Company Number: DE-MERCK-1105DEU00002

PATIENT
  Sex: Male

DRUGS (1)
  1. PROSCAR [Suspect]
     Route: 048

REACTIONS (2)
  - PROSTATIC SPECIFIC ANTIGEN DECREASED [None]
  - PROSTATE CANCER [None]
